FAERS Safety Report 9520731 (Version 1)
Quarter: 2013Q3

REPORT INFORMATION
  Report Type: Spontaneous
  Country: US (occurrence: None)
  Receive Date: 20130911
  Receipt Date: 20130911
  Transmission Date: 20140515
  Serious: Yes (Other)
  Sender: FDA-Public Use
  Company Number: None

PATIENT
  Age: 7 Year
  Sex: Male
  Weight: 69.85 kg

DRUGS (1)
  1. LEVALBUTEROL [Suspect]
     Indication: ASTHMA
     Dosage: 0.63/3MC
     Dates: start: 20130301

REACTIONS (1)
  - No therapeutic response [None]
